FAERS Safety Report 24137216 (Version 1)
Quarter: 2024Q3

REPORT INFORMATION
  Report Type: Spontaneous
  Country: IT (occurrence: IT)
  Receive Date: 20240725
  Receipt Date: 20240725
  Transmission Date: 20241017
  Serious: Yes (Other)
  Sender: SAMSUNG BIOEPIS
  Company Number: IT-SAMSUNG BIOEPIS-SB-2024-21900

PATIENT
  Age: 49 Year
  Sex: Female

DRUGS (4)
  1. TRASTUZUMAB [Suspect]
     Active Substance: TRASTUZUMAB
     Indication: Inflammatory carcinoma of the breast
     Route: 065
     Dates: start: 202203, end: 202209
  2. TRASTUZUMAB [Suspect]
     Active Substance: TRASTUZUMAB
     Dosage: MAINTENANCE SYSTEMIC THERAPY
     Route: 065
  3. PERTUZUMAB [Suspect]
     Active Substance: PERTUZUMAB
     Indication: Inflammatory carcinoma of the breast
     Route: 065
     Dates: start: 202203, end: 202209
  4. DOCETAXEL [Suspect]
     Active Substance: DOCETAXEL\DOCETAXEL ANHYDROUS
     Indication: Inflammatory carcinoma of the breast
     Route: 065
     Dates: start: 202203, end: 202209

REACTIONS (1)
  - Recall phenomenon [Recovered/Resolved]
